FAERS Safety Report 4548718-4 (Version None)
Quarter: 2005Q1

REPORT INFORMATION
  Report Type: 
  Country: None (occurrence: None)
  Receive Date: 20050106
  Receipt Date: 20041220
  Transmission Date: 20050727
  Serious: Yes (Hospitalization, Other)
  Sender: FDA-Public Use
  Company Number: USA041286591

PATIENT
  Age: 9 Year
  Sex: Female

DRUGS (1)
  1. STRATTERA [Suspect]
     Indication: ATTENTION DEFICIT/HYPERACTIVITY DISORDER
     Dosage: 40 MG/1 DAY
     Dates: start: 20040901, end: 20041204

REACTIONS (13)
  - ANOREXIA [None]
  - COMA [None]
  - DIZZINESS [None]
  - ENCEPHALITIS VIRAL [None]
  - EYE ROLLING [None]
  - FATIGUE [None]
  - FEELING ABNORMAL [None]
  - GENERAL PHYSICAL HEALTH DETERIORATION [None]
  - INSOMNIA [None]
  - MOOD SWINGS [None]
  - RASH PAPULAR [None]
  - SPEECH DISORDER [None]
  - STOMACH DISCOMFORT [None]
